FAERS Safety Report 9162090 (Version 1)
Quarter: 2013Q1

REPORT INFORMATION
  Report Type: Spontaneous
  Country: US (occurrence: US)
  Receive Date: 20130314
  Receipt Date: 20130314
  Transmission Date: 20140127
  Serious: No
  Sender: FDA-Public Use
  Company Number: US-009507513-1303USA006530

PATIENT
  Sex: Female

DRUGS (2)
  1. SINGULAIR [Suspect]
     Indication: ASTHMA
     Dosage: 10 MG, HS,ONCE DAILY AT BEDTIME
     Route: 048
     Dates: start: 201111, end: 201112
  2. PROAIR (ALBUTEROL SULFATE) [Concomitant]

REACTIONS (1)
  - Abnormal dreams [Not Recovered/Not Resolved]
